FAERS Safety Report 16358233 (Version 1)
Quarter: 2019Q2

REPORT INFORMATION
  Report Type: Spontaneous
  Country: FR (occurrence: FR)
  Receive Date: 20190527
  Receipt Date: 20190527
  Transmission Date: 20190711
  Serious: Yes (Other)
  Sender: FDA-Public Use
  Company Number: FR-009507513-1905FRA009969

PATIENT
  Age: 3 Year
  Sex: Male

DRUGS (1)
  1. DESLORATADINE. [Suspect]
     Active Substance: DESLORATADINE
     Indication: VARICELLA
     Dosage: 1 DOSAGE FORM
     Route: 048
     Dates: start: 20190424

REACTIONS (4)
  - Pruritus [Not Recovered/Not Resolved]
  - Agitation [Not Recovered/Not Resolved]
  - Lip swelling [Not Recovered/Not Resolved]
  - Wheezing [Not Recovered/Not Resolved]

NARRATIVE: CASE EVENT DATE: 20190425
